FAERS Safety Report 20155743 (Version 1)
Quarter: 2021Q4

REPORT INFORMATION
  Report Type: Spontaneous
  Country: US (occurrence: US)
  Receive Date: 20211207
  Receipt Date: 20211207
  Transmission Date: 20220303
  Serious: Yes (Hospitalization)
  Sender: FDA-Public Use
  Company Number: US-APOTEX-2021AP046098

PATIENT
  Age: 78 Year
  Sex: Male

DRUGS (12)
  1. FENTANYL [Suspect]
     Active Substance: FENTANYL
     Indication: Breakthrough pain
     Dosage: 50 MICROGRAM, Q.4H. (AS NEEDED)
     Route: 065
  2. FENTANYL [Suspect]
     Active Substance: FENTANYL
     Indication: Penile pain
  3. TRAMADOL [Suspect]
     Active Substance: TRAMADOL
     Indication: Breakthrough pain
     Dosage: 50 MILLIGRAM
     Route: 065
  4. TRAMADOL [Suspect]
     Active Substance: TRAMADOL
     Indication: Penile pain
  5. HYDROMORPHONE [Suspect]
     Active Substance: HYDROMORPHONE
     Indication: Breakthrough pain
     Dosage: 4 MILLIGRAM, QID
     Route: 065
  6. HYDROMORPHONE [Suspect]
     Active Substance: HYDROMORPHONE
     Indication: Penile pain
  7. MORPHINE [Suspect]
     Active Substance: MORPHINE
     Indication: Breakthrough pain
     Dosage: 4 MILLIGRAM
     Route: 065
  8. MORPHINE [Suspect]
     Active Substance: MORPHINE
     Indication: Penile pain
  9. ACETAMINOPHEN [Concomitant]
     Active Substance: ACETAMINOPHEN
     Indication: Breakthrough pain
     Dosage: 650 MILLIGRAM
     Route: 065
  10. ACETAMINOPHEN [Concomitant]
     Active Substance: ACETAMINOPHEN
     Indication: Penile pain
  11. GABAPENTIN [Concomitant]
     Active Substance: GABAPENTIN
     Indication: Breakthrough pain
     Dosage: 100 MILLIGRAM
     Route: 065
  12. GABAPENTIN [Concomitant]
     Active Substance: GABAPENTIN
     Indication: Penile pain

REACTIONS (2)
  - Inadequate analgesia [Unknown]
  - Confusional state [Unknown]
